FAERS Safety Report 5841203-9 (Version None)
Quarter: 2008Q3

REPORT INFORMATION
  Report Type: 
  Country: None (occurrence: None)
  Receive Date: 20080812
  Receipt Date: 20080804
  Transmission Date: 20090109
  Serious: Yes (Hospitalization)
  Sender: FDA-Public Use
  Company Number: DE-JNJFOC-20080205860

PATIENT
  Sex: Male

DRUGS (1)
  1. HALDOL [Suspect]
     Indication: HICCUPS
     Dosage: DURING 6 DAYS

REACTIONS (2)
  - HYPOKINESIA [None]
  - WEIGHT DECREASED [None]
